FAERS Safety Report 14768486 (Version 1)
Quarter: 2018Q2

REPORT INFORMATION
  Report Type: Spontaneous
  Country: US (occurrence: US)
  Receive Date: 20180410
  Receipt Date: 20180410
  Transmission Date: 20180711
  Serious: No
  Sender: FDA-Public Use
  Company Number: None

PATIENT
  Age: 77 Year
  Sex: Male

DRUGS (1)
  1. FORTEO [Suspect]
     Active Substance: TERIPARATIDE

REACTIONS (4)
  - Type 2 diabetes mellitus [None]
  - Hyperglycaemia [None]
  - Erectile dysfunction [None]
  - Essential hypertension [None]

NARRATIVE: CASE EVENT DATE: 20180410
